FAERS Safety Report 9680922 (Version 3)
Quarter: 2013Q4

REPORT INFORMATION
  Report Type: Report from Study
  Country: JP (occurrence: JP)
  Receive Date: 20131111
  Receipt Date: 20131231
  Transmission Date: 20140711
  Serious: Yes (Death, Hospitalization, Other)
  Sender: FDA-Public Use
  Company Number: JP-ABBVIE-11P-087-0706973-00

PATIENT
  Age: 48 Year
  Sex: Female
  Weight: 60.7 kg

DRUGS (28)
  1. HUMIRA [Suspect]
     Indication: RHEUMATOID ARTHRITIS
     Route: 058
     Dates: start: 20090924, end: 20110124
  2. PREDONINE [Suspect]
     Indication: RHEUMATOID ARTHRITIS
     Route: 048
     Dates: start: 20090924, end: 20101031
  3. PREDONINE [Suspect]
     Route: 048
     Dates: start: 20101101, end: 20101110
  4. PREDONINE [Suspect]
     Route: 048
     Dates: start: 20101112, end: 20110124
  5. PREDONINE [Suspect]
     Route: 048
     Dates: start: 20110125, end: 20110221
  6. PREDONINE [Suspect]
     Dates: start: 20110222, end: 20110314
  7. PREDONINE [Suspect]
     Dates: start: 20110315, end: 20110329
  8. PREDONINE [Suspect]
     Dates: start: 20110330, end: 20110411
  9. PREDONINE [Suspect]
     Dates: start: 20110412, end: 20110518
  10. PREDONINE [Suspect]
     Dates: start: 20110519, end: 20110830
  11. PREDONINE [Suspect]
     Dates: start: 20110831, end: 20110930
  12. PREDONINE [Suspect]
     Dates: start: 20111001
  13. CELECOXIB [Concomitant]
     Indication: RHEUMATOID ARTHRITIS
     Route: 048
  14. SODIUM RISEDRONATE HYDRATE [Concomitant]
     Indication: OSTEOPOROSIS PROPHYLAXIS
     Dosage: 17.5 MG/WEEK
     Route: 048
  15. SULFAMETHOXAZOLE W/TRIMETHOPRIM [Concomitant]
     Indication: INFECTION PROPHYLAXIS
     Dosage: 4 TABS/DAY, TWO DAY A WEEK
     Route: 048
  16. SULFAMETHOXAZOLE W/TRIMETHOPRIM [Concomitant]
     Indication: INFECTION PROPHYLAXIS
  17. OMPRAZOLE [Concomitant]
     Indication: GASTRITIS PROPHYLAXIS
     Route: 048
  18. OMPRAZOLE [Concomitant]
     Indication: GASTRITIS PROPHYLAXIS
  19. CODEINE PHOSPHATE HYDRATE [Concomitant]
     Indication: PRODUCT USED FOR UNKNOWN INDICATION
     Route: 048
  20. REBAMIPIDE [Concomitant]
     Indication: GASTRITIS PROPHYLAXIS
     Route: 048
  21. MECOBALAMIN [Concomitant]
     Indication: PRODUCT USED FOR UNKNOWN INDICATION
     Route: 048
  22. INSULIN HUMAN [Concomitant]
     Indication: PRODUCT USED FOR UNKNOWN INDICATION
     Dosage: BEFORE SLEEP.  BASED ON BS LEVEL.
     Dates: start: 20110221
  23. FLUTICASONE PROPIONATE W/SALMETEROL XINAFOATE [Concomitant]
     Indication: PRODUCT USED FOR UNKNOWN INDICATION
     Route: 055
  24. MAGNESIUM OXIDE [Concomitant]
     Indication: PRODUCT USED FOR UNKNOWN INDICATION
  25. MECOBALAMIN [Concomitant]
     Indication: PRODUCT USED FOR UNKNOWN INDICATION
     Dates: start: 20101129
  26. BEZAFIBRATE [Concomitant]
     Indication: PRODUCT USED FOR UNKNOWN INDICATION
     Dates: start: 2011, end: 20110419
  27. ALFACALCIDOL [Concomitant]
     Indication: OSTEOPOROSIS
     Dates: start: 20110912
  28. RALOXIFENE HYDROCHLORIDE [Concomitant]
     Indication: OSTEOPOROSIS
     Route: 048
     Dates: start: 20110912

REACTIONS (14)
  - Interstitial lung disease [Fatal]
  - Interstitial lung disease [Recovering/Resolving]
  - Asthma [Recovered/Resolved]
  - Meningitis [Recovered/Resolved]
  - Herpes zoster [Recovered/Resolved]
  - Headache [Unknown]
  - Nasopharyngitis [Unknown]
  - Cough [Recovering/Resolving]
  - Dyspnoea [Not Recovered/Not Resolved]
  - Asthma [Recovered/Resolved]
  - Hepatic function abnormal [Not Recovered/Not Resolved]
  - Diabetes mellitus [Not Recovered/Not Resolved]
  - Pain [Recovering/Resolving]
  - Diabetic neuropathy [Not Recovered/Not Resolved]
